FAERS Safety Report 15213355 (Version 1)
Quarter: 2018Q3

REPORT INFORMATION
  Report Type: Report from Study
  Country: JP (occurrence: JP)
  Receive Date: 20180730
  Receipt Date: 20180730
  Transmission Date: 20181010
  Serious: Yes (Death, Other)
  Sender: FDA-Public Use
  Company Number: JP-ROCHE-2156641

PATIENT

DRUGS (10)
  1. ETANERCEPT [Suspect]
     Active Substance: ETANERCEPT
     Indication: RHEUMATOID ARTHRITIS
     Route: 065
  2. ADALIMUMAB [Suspect]
     Active Substance: ADALIMUMAB
     Indication: RHEUMATOID ARTHRITIS
     Route: 065
  3. PREDNISOLONE. [Suspect]
     Active Substance: PREDNISOLONE
     Indication: RHEUMATOID ARTHRITIS
     Dosage: 4.1?4.4 MG/DAY
     Route: 048
  4. ABATACEPT [Suspect]
     Active Substance: ABATACEPT
     Indication: RHEUMATOID ARTHRITIS
     Route: 065
  5. METHOTREXATE. [Suspect]
     Active Substance: METHOTREXATE
     Indication: RHEUMATOID ARTHRITIS
     Route: 065
  6. GOLIMUMAB [Suspect]
     Active Substance: GOLIMUMAB
     Indication: RHEUMATOID ARTHRITIS
     Route: 065
  7. CERTOLIZUMAB [Suspect]
     Active Substance: CERTOLIZUMAB
     Indication: RHEUMATOID ARTHRITIS
     Route: 065
  8. TOCILIZUMAB. [Suspect]
     Active Substance: TOCILIZUMAB
     Indication: RHEUMATOID ARTHRITIS
     Route: 065
  9. INFLIXIMAB [Suspect]
     Active Substance: INFLIXIMAB
     Indication: RHEUMATOID ARTHRITIS
     Route: 065
  10. TACROLIMUS. [Suspect]
     Active Substance: TACROLIMUS
     Indication: RHEUMATOID ARTHRITIS
     Route: 065

REACTIONS (35)
  - Angina pectoris [Unknown]
  - Subcutaneous abscess [Unknown]
  - Haemorrhage subcutaneous [Unknown]
  - Diabetes mellitus [Unknown]
  - Urinary tract infection [Unknown]
  - Herpes zoster [Unknown]
  - Cardiac failure [Fatal]
  - Stress cardiomyopathy [Fatal]
  - Femoral neck fracture [Unknown]
  - Schizophrenia [Unknown]
  - Upper respiratory tract inflammation [Unknown]
  - Bronchitis [Unknown]
  - Dizziness [Unknown]
  - Peritonitis [Unknown]
  - Pyelonephritis acute [Unknown]
  - Aspergillus infection [Unknown]
  - Ophthalmic herpes zoster [Unknown]
  - Dermatophytosis of nail [Unknown]
  - Headache [Unknown]
  - Cystitis escherichia [Unknown]
  - Blood creatinine increased [Unknown]
  - Folliculitis [Unknown]
  - Gingivitis [Unknown]
  - Otitis media chronic [Unknown]
  - Myocardial infarction [Fatal]
  - Pneumonia [Unknown]
  - Glucose tolerance impaired [Unknown]
  - Glomerular filtration rate decreased [Unknown]
  - Chronic sinusitis [Unknown]
  - Cellulitis [Unknown]
  - Gastrointestinal disorder [Unknown]
  - Feeling abnormal [Unknown]
  - Renal impairment [Unknown]
  - Palpitations [Unknown]
  - Sinusitis [Unknown]
